FAERS Safety Report 4441444-1 (Version None)
Quarter: 2004Q3

REPORT INFORMATION
  Report Type: 
  Country: None (occurrence: None)
  Receive Date: 20040728
  Receipt Date: 20040402
  Transmission Date: 20050211
  Serious: No
  Sender: FDA-Public Use
  Company Number: USA040464022

PATIENT
  Age: 15 Year
  Sex: Male
  Weight: 100 kg

DRUGS (3)
  1. STRATTERA [Suspect]
     Dosage: 40 MG DAY
     Dates: start: 20040331
  2. ALBUTEROL [Concomitant]
  3. PROVENTIL [Concomitant]

REACTIONS (4)
  - DECREASED APPETITE [None]
  - HEADACHE [None]
  - LACRIMATION INCREASED [None]
  - RHINORRHOEA [None]
